FAERS Safety Report 8711050 (Version 2)
Quarter: 2012Q4

REPORT INFORMATION
  Report Type: 
  Country: US (occurrence: US)
  Receive Date: 20120807
  Receipt Date: 20120917
  Transmission Date: 20130627
  Serious: Yes (Hospitalization)
  Sender: FDA-Public Use
  Company Number: US-BAYER-2012-076897

PATIENT
  Age: 17 Year
  Sex: Female
  Weight: 55.78 kg

DRUGS (12)
  1. YAZ [Suspect]
     Indication: DYSMENORRHOEA
  2. YASMIN [Suspect]
  3. GIANVI [Suspect]
  4. DOCUSATE [Concomitant]
  5. FAMOTIDINE [Concomitant]
  6. BENZONATATE [Concomitant]
  7. OXYCODONE [Concomitant]
  8. PENICILLIN VK [Concomitant]
  9. PROMETHAZINE [Concomitant]
  10. HYDROCODONE W/ACETAMINOPHEN [Concomitant]
  11. HYDROMORPHONE [Concomitant]
  12. CLINDAMYCIN [Concomitant]

REACTIONS (3)
  - Intracranial venous sinus thrombosis [None]
  - Jugular vein thrombosis [None]
  - Cerebral infarction [None]
